FAERS Safety Report 5337012-X (Version None)
Quarter: 2007Q2

REPORT INFORMATION
  Report Type: 
  Country: None (occurrence: None)
  Receive Date: 20070523
  Receipt Date: 20070510
  Transmission Date: 20071010
  Serious: Yes (Hospitalization)
  Sender: FDA-Public Use
  Company Number: 02100-JPN-07-0222

PATIENT
  Age: 81 Year
  Sex: Male

DRUGS (10)
  1. CILOSTAZOL [Suspect]
     Indication: ARTERIOSCLEROSIS
     Dosage: 200 MG ORAL
     Route: 048
     Dates: start: 20070330, end: 20070406
  2. CILOSTAZOL [Suspect]
     Indication: CEREBRAL INFARCTION
     Dosage: 200 MG ORAL
     Route: 048
     Dates: start: 20070330, end: 20070406
  3. CILOSTAZOL [Suspect]
     Indication: ARTERIOSCLEROSIS
     Dosage: 200 MG ORAL
     Route: 048
     Dates: start: 20070417, end: 20070501
  4. CILOSTAZOL [Suspect]
     Indication: CEREBRAL INFARCTION
     Dosage: 200 MG ORAL
     Route: 048
     Dates: start: 20070417, end: 20070501
  5. RANITIDINE HYDROCHLORIDE [Concomitant]
  6. FLUTICASONE PROPIONATE [Concomitant]
  7. ARGATROBAN [Concomitant]
  8. ASPIRIN [Concomitant]
  9. CLOPIDOGREL BISULFATE [Concomitant]
  10. ATORVASTATIN CALCIUM [Concomitant]

REACTIONS (3)
  - APLASIA PURE RED CELL [None]
  - DRUG INTERACTION [None]
  - PLATELET COUNT INCREASED [None]
